FAERS Safety Report 8547684-4 (Version None)
Quarter: 2012Q3

REPORT INFORMATION
  Report Type: 
  Country: None (occurrence: None)
  Receive Date: 20120727
  Receipt Date: 20111128
  Transmission Date: 20120928
  Serious: Yes (Other)
  Sender: FDA-Public Use
  Company Number: US-ASTRAZENECA-2011SE72128

PATIENT
  Age: 42 Year
  Sex: Female
  Weight: 56.7 kg

DRUGS (6)
  1. LEXAPRO [Concomitant]
     Indication: DEPRESSION
  2. SEROQUEL [Suspect]
     Indication: INSOMNIA
     Route: 048
     Dates: start: 20111017
  3. SEROQUEL [Suspect]
     Route: 048
  4. DEPAKOTE ER [Concomitant]
     Indication: CONVULSION
  5. SEROQUEL [Suspect]
     Route: 048
  6. SEROQUEL [Suspect]
     Indication: DEPRESSION
     Route: 048
     Dates: start: 20111017

REACTIONS (5)
  - WEIGHT INCREASED [None]
  - LOW DENSITY LIPOPROTEIN INCREASED [None]
  - POLLAKIURIA [None]
  - CONVULSION [None]
  - OFF LABEL USE [None]
